FAERS Safety Report 21713998 (Version 1)
Quarter: 2022Q4

REPORT INFORMATION
  Report Type: Spontaneous
  Country: US (occurrence: None)
  Receive Date: 20221209
  Receipt Date: 20221209
  Transmission Date: 20230113
  Serious: Yes (Life-Threatening, Hospitalization)
  Sender: FDA-Public Use
  Company Number: None

PATIENT
  Age: 54 Year
  Sex: Male
  Weight: 69 kg

DRUGS (1)
  1. MIDAZOLAM HYDROCHLORIDE [Suspect]
     Active Substance: MIDAZOLAM HYDROCHLORIDE
     Indication: Angiogram
     Dosage: FREQUENCY : ONCE;?
     Route: 042
     Dates: start: 20220719, end: 20220719

REACTIONS (2)
  - Hypotension [None]
  - Shock [None]

NARRATIVE: CASE EVENT DATE: 20220719
